FAERS Safety Report 21909441 (Version 1)
Quarter: 2023Q1

REPORT INFORMATION
  Report Type: Spontaneous
  Country: US (occurrence: US)
  Receive Date: 20230125
  Receipt Date: 20230125
  Transmission Date: 20230418
  Serious: No
  Sender: FDA-Public Use
  Company Number: US-PFIZER INC-202300029215

PATIENT
  Age: 75 Year
  Sex: Female
  Weight: 49.9 kg

DRUGS (2)
  1. PAXLOVID [Suspect]
     Active Substance: NIRMATRELVIR\RITONAVIR
     Indication: COVID-19 treatment
     Dosage: UNK
     Dates: start: 202208
  2. ELIQUIS [Concomitant]
     Active Substance: APIXABAN
     Indication: Arrhythmia
     Dosage: SINCE SEVERAL YEARS

REACTIONS (1)
  - Dysgeusia [Unknown]

NARRATIVE: CASE EVENT DATE: 20220101
